FAERS Safety Report 20925667 (Version 1)
Quarter: 2022Q2

REPORT INFORMATION
  Report Type: Spontaneous
  Country: US (occurrence: US)
  Receive Date: 20220607
  Receipt Date: 20220607
  Transmission Date: 20220721
  Serious: No
  Sender: FDA-Public Use
  Company Number: US-PERRIGO-21US007572

PATIENT
  Sex: Female
  Weight: 63.492 kg

DRUGS (4)
  1. MINOXIDIL [Suspect]
     Active Substance: MINOXIDIL
     Indication: Alopecia
     Dosage: 1 CAPFUL, TWICE DAILY
     Route: 061
     Dates: start: 20210513
  2. VITAMIN D                          /00107901/ [Concomitant]
     Indication: Supplementation therapy
     Dosage: UNKNOWN, UNKNOWN
     Route: 065
  3. VITAMIN E                          /00110501/ [Concomitant]
     Indication: Supplementation therapy
     Dosage: UNKNOWN, UNKNOWN
     Route: 065
  4. VITAMINS [Concomitant]
     Active Substance: VITAMINS
     Indication: Supplementation therapy
     Dosage: UNKNOWN, UNKNOWN
     Route: 065

REACTIONS (3)
  - Drug ineffective [Unknown]
  - Incorrect dose administered [Not Recovered/Not Resolved]
  - Inappropriate schedule of product administration [Not Recovered/Not Resolved]

NARRATIVE: CASE EVENT DATE: 20210513
